FAERS Safety Report 11082346 (Version 1)
Quarter: 2015Q2

REPORT INFORMATION
  Report Type: Report from Study
  Country: US (occurrence: US)
  Receive Date: 20150501
  Receipt Date: 20150501
  Transmission Date: 20150821
  Serious: Yes (Other)
  Sender: FDA-Public Use
  Company Number: PHEH2015US008229

PATIENT
  Sex: Female

DRUGS (1)
  1. GILENYA [Suspect]
     Active Substance: FINGOLIMOD HYDROCHLORIDE
     Indication: PRODUCT USED FOR UNKNOWN INDICATION
     Dosage: 0.5 MG, QD
     Route: 048

REACTIONS (16)
  - Gait disturbance [Unknown]
  - Depression [Unknown]
  - Carpal tunnel syndrome [Unknown]
  - Cough [Unknown]
  - Central nervous system lesion [Unknown]
  - Hypoaesthesia [Unknown]
  - Paraesthesia [Unknown]
  - Pain in extremity [Unknown]
  - Multiple sclerosis [Unknown]
  - Memory impairment [Unknown]
  - Meningioma [Unknown]
  - Somnolence [Unknown]
  - Migraine [Unknown]
  - Muscular weakness [Unknown]
  - Insomnia [Unknown]
  - Musculoskeletal stiffness [Unknown]
